FAERS Safety Report 9298846 (Version 1)
Quarter: 2013Q2

REPORT INFORMATION
  Report Type: Spontaneous
  Country: FR (occurrence: None)
  Receive Date: 20130515
  Receipt Date: 20130515
  Transmission Date: 20140414
  Serious: Yes (Other)
  Sender: FDA-Public Use
  Company Number: 2013142476

PATIENT
  Age: 57 Year
  Sex: Male

DRUGS (1)
  1. FRAGMINE (DALTEPARIN SODIUM) SOLUTION FOR INJECTION [Suspect]
     Route: 058
     Dates: start: 20130125, end: 20130222

REACTIONS (1)
  - Thrombocytosis [None]
